FAERS Safety Report 5872979-2 (Version None)
Quarter: 2008Q3

REPORT INFORMATION
  Report Type: 
  Country: None (occurrence: None)
  Receive Date: 20080905
  Receipt Date: 20080826
  Transmission Date: 20090109
  Serious: Yes (Other)
  Sender: FDA-Public Use
  Company Number: BR-PFIZER INC-2008071910

PATIENT
  Sex: Male
  Weight: 88 kg

DRUGS (4)
  1. FELDENE [Suspect]
     Indication: TENDONITIS
     Route: 048
  2. CAPTOPRIL [Concomitant]
  3. AAS [Concomitant]
     Dates: start: 20080101
  4. SIMVASTATIN [Concomitant]

REACTIONS (1)
  - ISCHAEMIA [None]
